FAERS Safety Report 4918669-1 (Version None)
Quarter: 2006Q1

REPORT INFORMATION
  Report Type: 
  Country: None (occurrence: None)
  Receive Date: 20060222
  Receipt Date: 20060214
  Transmission Date: 20060701
  Serious: Yes (Other)
  Sender: FDA-Public Use
  Company Number: PHNU2006DE00910

PATIENT
  Age: 52 Year
  Sex: Female
  Weight: 75 kg

DRUGS (5)
  1. CLOZAPINE [Suspect]
     Indication: SCHIZOPHRENIA, PARANOID TYPE
     Dosage: UP TO 200 MG/DAY
     Route: 048
     Dates: start: 20051116, end: 20051130
  2. CLOZAPINE [Suspect]
     Dosage: 150 MG/DAY
     Route: 048
     Dates: start: 20051201, end: 20051202
  3. HALDOL [Concomitant]
     Indication: SCHIZOPHRENIA, PARANOID TYPE
     Dosage: 10 MG/DAY
     Route: 048
     Dates: end: 20051130
  4. HALDOL [Concomitant]
     Dosage: 7.5 MG/DAY
     Route: 048
     Dates: start: 20051201
  5. GASTROZEPIN [Concomitant]
     Indication: SALIVARY HYPERSECRETION
     Dosage: 50 MG, QD
     Route: 048
     Dates: start: 20051123, end: 20051202

REACTIONS (17)
  - ALANINE AMINOTRANSFERASE INCREASED [None]
  - BLOOD CREATININE INCREASED [None]
  - BLOOD LACTATE DEHYDROGENASE INCREASED [None]
  - BLOOD SODIUM DECREASED [None]
  - C-REACTIVE PROTEIN INCREASED [None]
  - DRUG LEVEL INCREASED [None]
  - ELECTROCARDIOGRAM ABNORMAL [None]
  - HAEMOGLOBIN DECREASED [None]
  - LEUKOCYTOSIS [None]
  - NEPHROPATHY TOXIC [None]
  - NITRITE URINE PRESENT [None]
  - PERICARDIAL EFFUSION [None]
  - PLEURAL EFFUSION [None]
  - POLYSEROSITIS [None]
  - PYREXIA [None]
  - ULTRASOUND SCAN ABNORMAL [None]
  - X-RAY ABNORMAL [None]
